FAERS Safety Report 6158986-3 (Version None)
Quarter: 2009Q2

REPORT INFORMATION
  Report Type: 
  Country: None (occurrence: None)
  Receive Date: 20090417
  Receipt Date: 20090406
  Transmission Date: 20091009
  Serious: Yes (Other)
  Sender: FDA-Public Use
  Company Number: JP-PFIZER INC-2009199045

PATIENT

DRUGS (1)
  1. LIPITOR [Suspect]
     Dosage: 5 MG, UNK
     Route: 048

REACTIONS (1)
  - AGRANULOCYTOSIS [None]
